FAERS Safety Report 9779856 (Version 1)
Quarter: 2013Q4

REPORT INFORMATION
  Report Type: Spontaneous
  Country: US (occurrence: US)
  Receive Date: 20131223
  Receipt Date: 20131223
  Transmission Date: 20140711
  Serious: No
  Sender: FDA-Public Use
  Company Number: US-ENDO PHARMACEUTICALS INC.-ZOLP20130040

PATIENT
  Sex: Female

DRUGS (1)
  1. ZOLPIDEM TARTRATE TABLETS 10MG [Suspect]
     Indication: PRODUCT USED FOR UNKNOWN INDICATION
     Route: 048

REACTIONS (8)
  - Blood pressure fluctuation [Unknown]
  - Rhinorrhoea [Unknown]
  - Abdominal pain upper [Unknown]
  - Dry mouth [Unknown]
  - Toothache [Unknown]
  - Lip pain [Unknown]
  - Myalgia [Unknown]
  - Eye pruritus [Unknown]
